FAERS Safety Report 8779249 (Version 2)
Quarter: 2013Q4

REPORT INFORMATION
  Report Type: Spontaneous
  Country: US (occurrence: US)
  Receive Date: 20120912
  Receipt Date: 20131031
  Transmission Date: 20140711
  Serious: Yes (Hospitalization)
  Sender: FDA-Public Use
  Company Number: US-009507513-1209USA003055

PATIENT
  Age: 46 Year
  Sex: Male

DRUGS (1)
  1. ISENTRESS [Suspect]
     Dosage: 400 MG, BID
     Route: 048

REACTIONS (6)
  - Loss of consciousness [Unknown]
  - Renal failure acute [Unknown]
  - Anaemia [Unknown]
  - Syncope [Unknown]
  - Femur fracture [Unknown]
  - Fall [Unknown]
